FAERS Safety Report 9145394 (Version 1)
Quarter: 2013Q1

REPORT INFORMATION
  Report Type: Spontaneous
  Country: US (occurrence: None)
  Receive Date: 20130226
  Receipt Date: 20130226
  Transmission Date: 20140127
  Serious: Yes (Other)
  Sender: FDA-Public Use
  Company Number: None

PATIENT
  Age: 54 Year
  Sex: Male

DRUGS (1)
  1. AUBAGIO [Suspect]
     Dosage: 14MG DAILY PO
     Route: 048
     Dates: start: 20121206

REACTIONS (2)
  - Nausea [None]
  - Impaired work ability [None]
